FAERS Safety Report 16102654 (Version 7)
Quarter: 2019Q4

REPORT INFORMATION
  Report Type: Spontaneous
  Country: US (occurrence: US)
  Receive Date: 20190321
  Receipt Date: 20191122
  Transmission Date: 20200122
  Serious: No
  Sender: FDA-Public Use
  Company Number: US-NEUROCRINE BIOSCIENCES INC.-2019NBI00646

PATIENT
  Sex: Male

DRUGS (9)
  1. INGREZZA [Suspect]
     Active Substance: VALBENAZINE
     Indication: TARDIVE DYSKINESIA
     Route: 048
     Dates: start: 201810
  2. CLONIDINE. [Concomitant]
     Active Substance: CLONIDINE
     Indication: TIC
  3. AMBIEN CR [Concomitant]
     Active Substance: ZOLPIDEM TARTRATE
     Indication: SLEEP DISORDER
  4. INGREZZA [Suspect]
     Active Substance: VALBENAZINE
     Route: 048
     Dates: start: 20190612
  5. PROPRANOLOL [Suspect]
     Active Substance: PROPRANOLOL HYDROCHLORIDE
     Indication: PRODUCT USED FOR UNKNOWN INDICATION
  6. MIRTAZAPINE. [Concomitant]
     Active Substance: MIRTAZAPINE
     Indication: SLEEP DISORDER
  7. MIRTAZAPINE. [Concomitant]
     Active Substance: MIRTAZAPINE
  8. CLONAZEPAM. [Suspect]
     Active Substance: CLONAZEPAM
     Indication: PRODUCT USED FOR UNKNOWN INDICATION
  9. INGREZZA [Suspect]
     Active Substance: VALBENAZINE
     Route: 048
     Dates: start: 20190611, end: 20190908

REACTIONS (11)
  - Sleep disorder [Unknown]
  - Tachycardia [Unknown]
  - Gait disturbance [Unknown]
  - Middle insomnia [Unknown]
  - Insomnia [Unknown]
  - Chest pain [Recovered/Resolved]
  - Drug ineffective [None]
  - Product dose omission [Unknown]
  - Weight decreased [Unknown]
  - Tardive dyskinesia [Not Recovered/Not Resolved]
  - Dyskinesia [Unknown]

NARRATIVE: CASE EVENT DATE: 2019
